FAERS Safety Report 25726686 (Version 3)
Quarter: 2025Q4

REPORT INFORMATION
  Report Type: Report from Study
  Country: CA (occurrence: CA)
  Receive Date: 20250826
  Receipt Date: 20251028
  Transmission Date: 20260117
  Serious: Yes (Death, Hospitalization, Other)
  Sender: FERRING
  Company Number: CA-FERRINGPH-2025FE04596

PATIENT

DRUGS (4)
  1. DEGARELIX [Suspect]
     Active Substance: DEGARELIX
     Indication: Hormone-dependent prostate cancer
     Dosage: 80 MG, MONTHLY
     Route: 058
     Dates: start: 20241101
  2. PREDNISONE [Suspect]
     Active Substance: PREDNISONE
     Indication: Product used for unknown indication
     Route: 065
  3. DOCETAXEL [Suspect]
     Active Substance: DOCETAXEL
     Indication: Product used for unknown indication
     Dosage: UNK
     Route: 065
  4. ABIRATERONE [Suspect]
     Active Substance: ABIRATERONE
     Indication: Product used for unknown indication
     Dosage: UNK
     Route: 065
     Dates: start: 202504, end: 202507

REACTIONS (8)
  - Prostate cancer metastatic [Fatal]
  - Gastroenteritis viral [Unknown]
  - Pneumonia [Unknown]
  - Asthenia [Unknown]
  - Malaise [Unknown]
  - Asthenia [Unknown]
  - Fatigue [Unknown]
  - Bone pain [Unknown]

NARRATIVE: CASE EVENT DATE: 20250701
